FAERS Safety Report 4821707-8 (Version None)
Quarter: 2005Q4

REPORT INFORMATION
  Report Type: 
  Country: None (occurrence: None)
  Receive Date: 20051104
  Receipt Date: 20051104
  Transmission Date: 20060501
  Serious: Yes (Hospitalization)
  Sender: FDA-Public Use
  Company Number: None

PATIENT
  Sex: Female

DRUGS (2)
  1. TEGRETOL [Suspect]
     Indication: TRIGEMINAL NEURALGIA
     Dosage: 200 MG Q DAY PO
     Route: 048
  2. DIFLUCAN [Suspect]
     Dosage: 150 MG Q DAY PO
     Route: 048

REACTIONS (6)
  - ANTICONVULSANT TOXICITY [None]
  - BODY TINEA [None]
  - LETHARGY [None]
  - NEUROTOXICITY [None]
  - PARAESTHESIA [None]
  - VISION BLURRED [None]
